FAERS Safety Report 8825795 (Version 2)
Quarter: 2012Q4

REPORT INFORMATION
  Report Type: 
  Country: US (occurrence: US)
  Receive Date: 20121004
  Receipt Date: 20121016
  Transmission Date: 20130627
  Serious: Yes (Hospitalization, Disabling, Other)
  Sender: FDA-Public Use
  Company Number: US-009507513-1209USA011812

PATIENT

DRUGS (2)
  1. FOSAMAX [Suspect]
     Route: 048
  2. FOSAMAX [Suspect]
     Route: 048

REACTIONS (19)
  - Femur fracture [Not Recovered/Not Resolved]
  - Packed red blood cell transfusion [Recovering/Resolving]
  - Internal fixation of fracture [Unknown]
  - Haemoglobin decreased [Recovering/Resolving]
  - Femoral hernia repair [Unknown]
  - Fall [Unknown]
  - Arthralgia [Not Recovered/Not Resolved]
  - Fall [Unknown]
  - Inguinal hernia repair [Unknown]
  - Osteoarthritis [Not Recovered/Not Resolved]
  - Jaw operation [Unknown]
  - Jaw fracture [Unknown]
  - Road traffic accident [Unknown]
  - Neuroma [Unknown]
  - Osteopenia [Unknown]
  - Paranasal sinus hypersecretion [Unknown]
  - Varicose vein [Unknown]
  - Arthropathy [Unknown]
  - Constipation [Unknown]
